FAERS Safety Report 16286740 (Version 1)
Quarter: 2019Q2

REPORT INFORMATION
  Report Type: Spontaneous
  Country: KR (occurrence: KR)
  Receive Date: 20190508
  Receipt Date: 20190508
  Transmission Date: 20190711
  Serious: Yes (Other)
  Sender: FDA-Public Use
  Company Number: KR-PURDUE-CAN-2019-0010003

PATIENT
  Age: 55 Year
  Sex: Male

DRUGS (6)
  1. ROPINIROLE. [Suspect]
     Active Substance: ROPINIROLE
     Indication: REHABILITATION THERAPY
     Dosage: 1.5 MG, UNK
     Route: 065
  2. TIANEPTINE SODIUM [Suspect]
     Active Substance: TIANEPTINE SODIUM
     Indication: REHABILITATION THERAPY
     Dosage: 37.5 MG, UNK
     Route: 065
  3. BROMOCRIPTINE MESYLATE [Suspect]
     Active Substance: BROMOCRIPTINE MESYLATE
     Indication: REHABILITATION THERAPY
     Dosage: 7.5 MG, UNK
     Route: 065
  4. NON-PMN METHYLPHENIDATE HYDROCHLORIDE [Suspect]
     Active Substance: METHYLPHENIDATE HYDROCHLORIDE
     Indication: REHABILITATION THERAPY
     Dosage: 7.5 MG, UNK
     Route: 065
  5. VENLAFAXINE [Suspect]
     Active Substance: VENLAFAXINE HYDROCHLORIDE
     Indication: REHABILITATION THERAPY
     Dosage: 75 MG, UNK
     Route: 065
  6. CARBIDOPA/LEVODOPA [Suspect]
     Active Substance: CARBIDOPA\LEVODOPA
     Indication: REHABILITATION THERAPY
     Dosage: 75/750 MG
     Route: 065

REACTIONS (2)
  - Serotonin syndrome [Recovered/Resolved]
  - Stress cardiomyopathy [Recovered/Resolved]
